FAERS Safety Report 4696632-6 (Version None)
Quarter: 2005Q2

REPORT INFORMATION
  Report Type: 
  Country: None (occurrence: None)
  Receive Date: 20050620
  Receipt Date: 20050524
  Transmission Date: 20051028
  Serious: No
  Sender: FDA-Public Use
  Company Number: A-US2005-09686

PATIENT
  Age: 12 Year
  Sex: Male
  Weight: 40.4 kg

DRUGS (2)
  1. ZAVESCA [Suspect]
     Indication: NIEMANN-PICK DISEASE
     Dosage: 100 MG, TID, ORAL
     Route: 048
     Dates: start: 20050412, end: 20050501
  2. RITALIN [Concomitant]

REACTIONS (3)
  - ABNORMAL BEHAVIOUR [None]
  - AGGRESSION [None]
  - EATING DISORDER SYMPTOM [None]
